FAERS Safety Report 5469615-6 (Version None)
Quarter: 2007Q3

REPORT INFORMATION
  Report Type: 
  Country: None (occurrence: None)
  Receive Date: 20070820
  Receipt Date: 20070508
  Transmission Date: 20080115
  Serious: No
  Sender: FDA-Public Use
  Company Number: WAES 0705USA01724

PATIENT

DRUGS (2)
  1. JANUVIA [Suspect]
     Dosage: 100 MG/AM/PO
     Route: 048
  2. METFORMIN HCL [Suspect]
     Dosage: 500 MG/PM/

REACTIONS (1)
  - BLOOD GLUCOSE INCREASED [None]
